FAERS Safety Report 7153040-6 (Version None)
Quarter: 2010Q4

REPORT INFORMATION
  Report Type: 
  Country: None (occurrence: None)
  Receive Date: 20101213
  Receipt Date: 20101201
  Transmission Date: 20110411
  Serious: Yes (Hospitalization, Other)
  Sender: FDA-Public Use
  Company Number: FR-NOVOPROD-318876

PATIENT
  Age: 63 Year
  Sex: Male
  Weight: 139 kg

DRUGS (7)
  1. VICTOZA [Suspect]
     Indication: TYPE 2 DIABETES MELLITUS
     Dosage: 0.6 MG, QD
     Route: 058
     Dates: start: 20101014
  2. LEVEMIR [Concomitant]
     Indication: DIABETES MELLITUS
  3. METORMIN [Concomitant]
     Indication: DIABETES MELLITUS
     Dosage: 2 G, QD
     Route: 048
     Dates: start: 20020101
  4. DIAMICRON [Concomitant]
     Indication: DIABETES MELLITUS
     Dosage: 90 MG, QD
     Route: 048
     Dates: start: 20030101
  5. FENOFIBRATE [Concomitant]
     Indication: DYSLIPIDAEMIA
     Dosage: 145 MG, QD
     Route: 048
     Dates: start: 20040705
  6. MICARDIS HCT [Concomitant]
     Indication: HYPERTENSION
     Dosage: 1 TAB, QD
     Route: 048
     Dates: start: 20050201
  7. DILTIAZEM [Concomitant]
     Indication: HYPERTENSION
     Dosage: 300 MG, QD
     Route: 048
     Dates: start: 20070501

REACTIONS (1)
  - PULMONARY EMBOLISM [None]
